FAERS Safety Report 8875184 (Version 1)
Quarter: 2012Q4

REPORT INFORMATION
  Report Type: 
  Country: US (occurrence: US)
  Receive Date: 20121026
  Receipt Date: 20121026
  Transmission Date: 20130627
  Serious: No
  Sender: FDA-Public Use
  Company Number: US-AMGEN-USASP2012044872

PATIENT
  Sex: Female

DRUGS (6)
  1. ENBREL [Suspect]
     Indication: PRODUCT USED FOR UNKNOWN INDICATION
     Dosage: 50 mg, qwk
     Route: 058
  2. METHOTREXATE [Concomitant]
     Dosage: 250 mg/10
  3. FOLIC ACID [Concomitant]
     Dosage: UNK
  4. GABAPENTIN [Concomitant]
     Dosage: 100 mg, UNK
  5. HYDROCODONE W/APAP                 /00607101/ [Concomitant]
     Dosage: 5-500 mg
  6. VOLTAREN                           /00372301/ [Concomitant]
     Dosage: 50 mg EC

REACTIONS (2)
  - Contusion [Unknown]
  - Joint swelling [Unknown]
